FAERS Safety Report 7114337-9 (Version None)
Quarter: 2010Q4

REPORT INFORMATION
  Report Type: 
  Country: None (occurrence: None)
  Receive Date: 20101119
  Receipt Date: 20101108
  Transmission Date: 20110411
  Serious: Yes (Other)
  Sender: FDA-Public Use
  Company Number: US-PFIZER INC-2010113692

PATIENT
  Sex: Female
  Weight: 61.224 kg

DRUGS (5)
  1. DETROL [Suspect]
     Indication: INCONTINENCE
     Dosage: UNK, 2X/DAY
     Route: 048
     Dates: start: 20070101
  2. TOVIAZ [Suspect]
     Indication: INCONTINENCE
     Dosage: 8 MG, DAILY
     Route: 048
     Dates: start: 20100901
  3. VICODIN [Concomitant]
     Indication: RHEUMATOID ARTHRITIS
     Dosage: UNK
  4. VICODIN [Concomitant]
     Indication: OSTEOARTHRITIS
  5. DONNATAL [Concomitant]
     Indication: ABDOMINAL DISCOMFORT
     Dosage: UNK

REACTIONS (5)
  - BLOOD IRON DECREASED [None]
  - BLOOD POTASSIUM DECREASED [None]
  - DRUG INEFFECTIVE [None]
  - VITAMIN B12 DECREASED [None]
  - WHITE BLOOD CELL COUNT INCREASED [None]
